FAERS Safety Report 10095752 (Version 2)
Quarter: 2014Q3

REPORT INFORMATION
  Report Type: Report from Study
  Country: BR (occurrence: BR)
  Receive Date: 20140422
  Receipt Date: 20140821
  Transmission Date: 20150326
  Serious: Yes (Hospitalization, Other)
  Sender: FDA-Public Use
  Company Number: BR-BAYER-2014-055476

PATIENT
  Age: 53 Year
  Sex: Male

DRUGS (1)
  1. NEXAVAR [Suspect]
     Active Substance: SORAFENIB
     Indication: HEPATIC CANCER
     Dosage: 1 DF, BID
     Route: 048
     Dates: start: 201205, end: 201304

REACTIONS (4)
  - Syncope [None]
  - Renal impairment [Recovered/Resolved]
  - Heart rate decreased [None]
  - Blood potassium increased [None]
